FAERS Safety Report 24060210 (Version 4)
Quarter: 2024Q3

REPORT INFORMATION
  Report Type: Spontaneous
  Country: CL (occurrence: CL)
  Receive Date: 20240708
  Receipt Date: 20240924
  Transmission Date: 20241016
  Serious: Yes (Death, Hospitalization)
  Sender: NOVARTIS
  Company Number: CL-002147023-NVSC2024CL139957

PATIENT
  Age: 1 Year
  Sex: Male

DRUGS (1)
  1. ZOLGENSMA [Suspect]
     Active Substance: ONASEMNOGENE ABEPARVOVEC-XIOI
     Indication: Spinal muscular atrophy
     Dosage: UNK, ONCE/SINGLE
     Route: 042
     Dates: start: 20240327, end: 20240327

REACTIONS (28)
  - Acute hepatic failure [Fatal]
  - Shock [Fatal]
  - Blood urea increased [Unknown]
  - Aspartate aminotransferase increased [Unknown]
  - Blood glucose increased [Unknown]
  - Blood creatinine increased [Unknown]
  - Alanine aminotransferase increased [Unknown]
  - Blood uric acid increased [Unknown]
  - C-reactive protein increased [Unknown]
  - Procalcitonin increased [Unknown]
  - White blood cell count increased [Unknown]
  - Haematocrit decreased [Unknown]
  - Haemoglobin decreased [Unknown]
  - Red cell distribution width increased [Unknown]
  - Neutrophil count increased [Unknown]
  - Monocyte count increased [Unknown]
  - Polymerase chain reaction positive [Unknown]
  - Tracheal aspiration procedure [Unknown]
  - Blood lactate dehydrogenase increased [Unknown]
  - Blood chloride increased [Unknown]
  - Blood gases abnormal [Unknown]
  - Blood fibrinogen decreased [Unknown]
  - Activated partial thromboplastin time prolonged [Unknown]
  - Blood thyroid stimulating hormone decreased [Unknown]
  - International normalised ratio increased [Unknown]
  - Prothrombin time prolonged [Unknown]
  - Blood albumin decreased [Unknown]
  - Blood pH decreased [Unknown]

NARRATIVE: CASE EVENT DATE: 20240702
